FAERS Safety Report 21006307 (Version 7)
Quarter: 2025Q3

REPORT INFORMATION
  Report Type: Report from Study
  Country: CA (occurrence: CA)
  Receive Date: 20220624
  Receipt Date: 20250912
  Transmission Date: 20251021
  Serious: Yes (Hospitalization, Other)
  Sender: BIOCON
  Company Number: CA-MYLANLABS-2022M1043500

PATIENT

DRUGS (4)
  1. HULIO [Suspect]
     Active Substance: ADALIMUMAB-FKJP
     Indication: Juvenile idiopathic arthritis
     Route: 058
  2. HULIO [Suspect]
     Active Substance: ADALIMUMAB-FKJP
     Dosage: 40 MILLIGRAM, Q2W (40MG EVERY OTHER WEEK)
     Route: 058
     Dates: start: 20211129, end: 202210
  3. HULIO [Suspect]
     Active Substance: ADALIMUMAB-FKJP
     Route: 058
     Dates: start: 20211129
  4. HULIO [Suspect]
     Active Substance: ADALIMUMAB-FKJP
     Route: 065
     Dates: start: 20241221

REACTIONS (5)
  - Nephrolithiasis [Not Recovered/Not Resolved]
  - Hospitalisation [Unknown]
  - Juvenile idiopathic arthritis [Unknown]
  - Pharyngitis streptococcal [Unknown]
  - Product dose omission issue [Unknown]
